FAERS Safety Report 22643730 (Version 1)
Quarter: 2023Q2

REPORT INFORMATION
  Report Type: Other
  Country: KZ (occurrence: KZ)
  Receive Date: 20230627
  Receipt Date: 20230627
  Transmission Date: 20230721
  Serious: Yes (Hospitalization)
  Sender: FDA-Public Use
  Company Number: KZ-MACLEODS PHARMACEUTICALS LTD. KAZAKHSTAN-MAC2023040958

PATIENT

DRUGS (7)
  1. PYRAZINAMIDE [Suspect]
     Active Substance: PYRAZINAMIDE
     Indication: Pulmonary tuberculosis
     Dosage: 2000 MILLIGRAM, QD (MCLEODS PHARMACEUTICS LTD, INDIA, RK-LS-5 NO.024322, DATE OF MANUFACTURE MAY 202
     Route: 065
     Dates: start: 20230221, end: 20230228
  2. RIFAMPIN [Concomitant]
     Active Substance: RIFAMPIN
     Indication: Product used for unknown indication
     Dosage: 4 DOSAGE FORM, QD (3 TABS, RK-LS-5 NO. 013640, CONCEPT PHARMACEUTICALS LIMITED; INDIA (DATE OF MANUF
     Route: 065
     Dates: start: 20230214
  3. ISONIAZID [Concomitant]
     Active Substance: ISONIAZID
     Indication: Pulmonary tuberculosis
     Dosage: 300 MILLIGRAM, QD (3 TABS, PHARMSINTEZ JSC PHARMASYNTEZ, RUSSIA.; RK-LS-5 NO. 020274, MFG DATE: 21 J
     Route: 065
     Dates: start: 20230206
  4. ETHAMBUTOL HYDROCHLORIDE [Concomitant]
     Active Substance: ETHAMBUTOL HYDROCHLORIDE
     Indication: Pulmonary tuberculosis
     Dosage: 1200 MILLIGRAM, QD (3 TABS, CONCEPT PHARMACEUTICALS LIMITED; INDIA, DATE OF MANUFACTURE DEC 2020)
     Route: 065
     Dates: start: 20230206
  5. PROGRAF [Concomitant]
     Active Substance: TACROLIMUS
     Indication: Product used for unknown indication
     Dosage: 2.5 MILLIGRAM, BID
     Route: 065
  6. Celsept [Concomitant]
     Indication: Product used for unknown indication
     Dosage: 500 MILLIGRAM, BID
     Route: 065
  7. METIPRED [Concomitant]
     Active Substance: METHYLPREDNISOLONE
     Indication: Product used for unknown indication
     Dosage: 4 MILLIGRAM, QD
     Route: 065

REACTIONS (4)
  - Asthenia [Not Recovered/Not Resolved]
  - Decreased appetite [Not Recovered/Not Resolved]
  - Alanine aminotransferase increased [Recovering/Resolving]
  - Nausea [Not Recovered/Not Resolved]

NARRATIVE: CASE EVENT DATE: 20230227
